FAERS Safety Report 22587055 (Version 1)
Quarter: 2023Q2

REPORT INFORMATION
  Report Type: Spontaneous
  Country: US (occurrence: US)
  Receive Date: 20230612
  Receipt Date: 20230612
  Transmission Date: 20230722
  Serious: Yes (Other)
  Sender: FDA-Public Use
  Company Number: US-SANOFI-01644866

PATIENT
  Age: 68 Year
  Sex: Female

DRUGS (1)
  1. LANTUS SOLOSTAR [Suspect]
     Active Substance: INSULIN GLARGINE
     Indication: Type 2 diabetes mellitus
     Dosage: UNK UNK, QD
     Dates: start: 201801

REACTIONS (5)
  - Cataract [Unknown]
  - Retinal haemorrhage [Unknown]
  - Diabetic retinal oedema [Unknown]
  - Visual impairment [Unknown]
  - Blood glucose increased [Unknown]

NARRATIVE: CASE EVENT DATE: 20180101
